FAERS Safety Report 13858841 (Version 1)
Quarter: 2017Q3

REPORT INFORMATION
  Report Type: Spontaneous
  Country: US (occurrence: US)
  Receive Date: 20170811
  Receipt Date: 20170811
  Transmission Date: 20171127
  Serious: No
  Sender: FDA-Public Use
  Company Number: US-PERRIGO-16US020822

PATIENT
  Sex: Male

DRUGS (2)
  1. LORATADINE. [Suspect]
     Active Substance: LORATADINE
     Indication: PRURITUS
     Dosage: 10 MG, QD
     Route: 048
     Dates: start: 20161005, end: 20161006
  2. LORATADINE. [Suspect]
     Active Substance: LORATADINE
     Dosage: 10 MG, TID
     Route: 048
     Dates: start: 20161007, end: 20161008

REACTIONS (2)
  - Drug ineffective for unapproved indication [Unknown]
  - Overdose [Recovered/Resolved]

NARRATIVE: CASE EVENT DATE: 20161005
